FAERS Safety Report 7901889-1 (Version None)
Quarter: 2011Q4

REPORT INFORMATION
  Report Type: 
  Country: None (occurrence: None)
  Receive Date: 20111108
  Receipt Date: 20111104
  Transmission Date: 20120403
  Serious: Yes (Hospitalization)
  Sender: FDA-Public Use
  Company Number: DE-EISAI INC-E2090-01792-SPO-DE

PATIENT
  Age: 75 Year
  Sex: Male
  Weight: 85 kg

DRUGS (4)
  1. LEVETIRACETAM [Concomitant]
     Indication: EPILEPSY
     Dosage: 4 GRAMS DAILY
     Route: 048
  2. LEVOTHYROXINE SODIUM [Concomitant]
     Indication: HYPOTHYROIDISM
     Dosage: 125 UG DAILY
     Route: 048
  3. ZONEGRAN [Suspect]
     Indication: EPILEPSY
     Dosage: 400 MG DAILY
     Route: 048
  4. ASPIRIN [Concomitant]
     Indication: ANTIPLATELET THERAPY
     Dosage: 100 MG DAILY
     Route: 048

REACTIONS (1)
  - RASH PUSTULAR [None]
